FAERS Safety Report 11298715 (Version 1)
Quarter: 2015Q3

REPORT INFORMATION
  Report Type: Spontaneous
  Country: US (occurrence: US)
  Receive Date: 20150722
  Receipt Date: 20150722
  Transmission Date: 20151125
  Serious: No
  Sender: FDA-Public Use
  Company Number: US-ELI_LILLY_AND_COMPANY-US201203007209

PATIENT
  Age: 55 Year
  Sex: Male

DRUGS (3)
  1. COREG [Concomitant]
     Active Substance: CARVEDILOL
     Dosage: 625 MG, BID
  2. EFFIENT [Suspect]
     Active Substance: PRASUGREL HYDROCHLORIDE
     Dosage: 10 MG, UNK
     Dates: start: 20111019, end: 20120123
  3. LIPITOR [Concomitant]
     Active Substance: ATORVASTATIN CALCIUM
     Dosage: 40 MG, UNK

REACTIONS (1)
  - Blood urine present [Unknown]
